FAERS Safety Report 18750041 (Version 1)
Quarter: 2021Q1

REPORT INFORMATION
  Report Type: Report from Study
  Country: BR (occurrence: BR)
  Receive Date: 20210118
  Receipt Date: 20210118
  Transmission Date: 20210419
  Serious: Yes (Other)
  Sender: FDA-Public Use
  Company Number: BR-UCBSA-2021001380

PATIENT
  Sex: Female
  Weight: 67 kg

DRUGS (8)
  1. CERTOLIZUMAB PEGOL RA [Suspect]
     Active Substance: CERTOLIZUMAB PEGOL
     Indication: RHEUMATOID ARTHRITIS
     Dosage: 200 MILLIGRAM, EV 2 WEEKS(QOW)
     Route: 058
  2. PAMELOR [Concomitant]
     Active Substance: NORTRIPTYLINE HYDROCHLORIDE
     Indication: HEADACHE
     Dosage: UNK
     Route: 048
  3. OLUMIANT [Concomitant]
     Active Substance: BARICITINIB
     Indication: RHEUMATOID ARTHRITIS
     Dosage: UNK
     Route: 048
  4. MORFINA [MORPHINE] [Concomitant]
     Indication: HEADACHE
     Dosage: UNK
     Route: 042
  5. TRILEPTAL [Concomitant]
     Active Substance: OXCARBAZEPINE
     Indication: CEREBRAL DISORDER
     Dosage: UNK
     Route: 048
  6. ARADOIS [Concomitant]
     Active Substance: LOSARTAN POTASSIUM
     Indication: HYPERTENSION
     Dosage: UNK
     Route: 048
  7. PROLIA [Concomitant]
     Active Substance: DENOSUMAB
     Indication: OSTEOPOROSIS
     Dosage: UNK
     Route: 058
  8. PROPANOLOL [PROPRANOLOL] [Concomitant]
     Active Substance: PROPRANOLOL HYDROCHLORIDE
     Indication: HYPERTENSION
     Dosage: UNK
     Route: 048

REACTIONS (4)
  - Dengue fever [Recovered/Resolved]
  - Weight decreased [Recovered/Resolved]
  - Blood sodium decreased [Recovered/Resolved]
  - Ulcer [Recovering/Resolving]
